FAERS Safety Report 5359523-3 (Version None)
Quarter: 2007Q2

REPORT INFORMATION
  Report Type: 
  Country: None (occurrence: None)
  Receive Date: 20070615
  Receipt Date: 20070608
  Transmission Date: 20071010
  Serious: Yes (Other)
  Sender: FDA-Public Use
  Company Number: US-PFIZER INC-2007047306

PATIENT
  Sex: Male
  Weight: 113.63 kg

DRUGS (8)
  1. CELEBREX [Suspect]
     Indication: OSTEOARTHRITIS
  2. NEXIUM [Concomitant]
  3. ZETIA [Concomitant]
  4. CARDURA [Concomitant]
  5. TOPROL-XL [Concomitant]
  6. PREDNISONE TAB [Concomitant]
  7. CIPROFLOXACIN [Concomitant]
  8. VITAMINS WITH MINERALS [Concomitant]

REACTIONS (6)
  - APPENDICITIS [None]
  - NEOPLASM [None]
  - OEDEMA PERIPHERAL [None]
  - RENAL SURGERY [None]
  - SKIN CANCER [None]
  - SKIN REACTION [None]
